FAERS Safety Report 7728984-4 (Version None)
Quarter: 2011Q3

REPORT INFORMATION
  Report Type: 
  Country: None (occurrence: None)
  Receive Date: 20110906
  Receipt Date: 20110823
  Transmission Date: 20111222
  Serious: Yes (Hospitalization, Other)
  Sender: FDA-Public Use
  Company Number: DE-UCBSA-040155

PATIENT

DRUGS (2)
  1. CIMZIA [Suspect]
     Route: 064
     Dates: start: 20110301, end: 20110816
  2. CIMZIA [Suspect]
     Route: 063
     Dates: start: 20110801, end: 20110801

REACTIONS (3)
  - BRADYCARDIA [None]
  - MATERNAL EXPOSURE DURING PREGNANCY [None]
  - EXPOSURE DURING BREAST FEEDING [None]
